FAERS Safety Report 21315668 (Version 1)
Quarter: 2022Q3

REPORT INFORMATION
  Report Type: Spontaneous
  Country: US (occurrence: US)
  Receive Date: 20220909
  Receipt Date: 20220909
  Transmission Date: 20221026
  Serious: No
  Sender: FDA-Public Use
  Company Number: US-ELI_LILLY_AND_COMPANY-US202208007668

PATIENT
  Age: 54 Year
  Sex: Female

DRUGS (1)
  1. MOUNJARO [Suspect]
     Active Substance: TIRZEPATIDE
     Indication: Product used for unknown indication
     Dosage: UNK UNK, UNKNOWN
     Route: 058
     Dates: start: 20220811

REACTIONS (13)
  - Feeling abnormal [Unknown]
  - Rash macular [Recovered/Resolved]
  - Cough [Unknown]
  - Swollen tongue [Recovering/Resolving]
  - Erythema [Unknown]
  - Pruritus [Recovered/Resolved]
  - Muscle strain [Unknown]
  - Swelling [Unknown]
  - Swollen tongue [Unknown]
  - Rash [Unknown]
  - Panic attack [Recovered/Resolved]
  - Palpitations [Recovered/Resolved]
  - COVID-19 [Unknown]

NARRATIVE: CASE EVENT DATE: 20220811
